FAERS Safety Report 7997107-9 (Version None)
Quarter: 2011Q4

REPORT INFORMATION
  Report Type: 
  Country: None (occurrence: None)
  Receive Date: 20111216
  Receipt Date: 20111205
  Transmission Date: 20120403
  Serious: Yes (Hospitalization)
  Sender: FDA-Public Use
  Company Number: 2011MA017306

PATIENT
  Age: 45 Year
  Sex: Female

DRUGS (10)
  1. LORAZEPAM [Suspect]
     Indication: ANXIETY
  2. LORAZEPAM [Suspect]
     Indication: PANIC ATTACK
  3. LORAZEPAM [Suspect]
     Indication: DEPRESSION
  4. CITALOPRAM HYDROBROMIDE [Suspect]
     Indication: ANXIETY
  5. CITALOPRAM HYDROBROMIDE [Suspect]
     Indication: DEPRESSION
  6. CITALOPRAM HYDROBROMIDE [Suspect]
     Indication: PANIC ATTACK
  7. PRAMIPEXOLE DIHYDROCHLORIDE [Suspect]
     Indication: MASKED FACIES
  8. PRAMIPEXOLE DIHYDROCHLORIDE [Suspect]
     Indication: MUSCLE RIGIDITY
  9. PRAMIPEXOLE DIHYDROCHLORIDE [Suspect]
     Indication: SLOW SPEECH
  10. PRAMIPEXOLE DIHYDROCHLORIDE [Suspect]
     Indication: BRADYKINESIA

REACTIONS (13)
  - GAIT DISTURBANCE [None]
  - BONE DENSITY DECREASED [None]
  - SLOW SPEECH [None]
  - MUSCLE RIGIDITY [None]
  - GAMBLING [None]
  - BRADYKINESIA [None]
  - BLOOD PHOSPHORUS DECREASED [None]
  - MOVEMENT DISORDER [None]
  - ARTHRALGIA [None]
  - MASKED FACIES [None]
  - BLOOD PARATHYROID HORMONE INCREASED [None]
  - BLOOD CALCIUM INCREASED [None]
  - PARATHYROID TUMOUR BENIGN [None]
